FAERS Safety Report 26016340 (Version 3)
Quarter: 2025Q4

REPORT INFORMATION
  Report Type: Report from Study
  Country: US (occurrence: US)
  Receive Date: 20251110
  Receipt Date: 20251231
  Transmission Date: 20260117
  Serious: Yes (Death, Life-Threatening, Hospitalization)
  Sender: EXELIXIS
  Company Number: US-EXELIXIS-EXL-2025-013051

PATIENT
  Age: 62 Year
  Sex: Male

DRUGS (1)
  1. CABOMETYX [Suspect]
     Active Substance: CABOZANTINIB S-MALATE
     Indication: Renal cancer
     Dosage: 60 MG, QD
     Route: 048

REACTIONS (7)
  - Pulmonary haemorrhage [Recovering/Resolving]
  - Death [Fatal]
  - Hypertension [Recovered/Resolved]
  - Oral discomfort [Unknown]
  - Nasal dryness [Unknown]
  - Dry mouth [Unknown]
  - Skin ulcer [Unknown]

NARRATIVE: CASE EVENT DATE: 20251127
